FAERS Safety Report 7082834-0 (Version None)
Quarter: 2010Q4

REPORT INFORMATION
  Report Type: 
  Country: None (occurrence: None)
  Receive Date: 20101104
  Receipt Date: 20100318
  Transmission Date: 20110411
  Serious: No
  Sender: FDA-Public Use
  Company Number: A0850866A

PATIENT
  Age: 70 Year
  Sex: Female

DRUGS (1)
  1. VERDESO [Suspect]
     Dosage: 1APP PER DAY
     Route: 061
     Dates: start: 20100317

REACTIONS (1)
  - APPLICATION SITE PAIN [None]
